FAERS Safety Report 5054084-0 (Version None)
Quarter: 2006Q2

REPORT INFORMATION
  Report Type: 
  Country: None (occurrence: None)
  Receive Date: 20060616
  Receipt Date: 20050520
  Transmission Date: 20061013
  Serious: Yes (Hospitalization)
  Sender: FDA-Public Use
  Company Number: 200514375US

PATIENT
  Sex: Female

DRUGS (3)
  1. LANTUS [Suspect]
     Dosage: 10 U QD
  2. LANTUS [Suspect]
     Dosage: 30 U QD
  3. GLUCAGON [Concomitant]

REACTIONS (2)
  - HYPERGLYCAEMIA [None]
  - HYPOGLYCAEMIC COMA [None]
